FAERS Safety Report 4659222-7 (Version None)
Quarter: 2005Q2

REPORT INFORMATION
  Report Type: 
  Country: None (occurrence: None)
  Receive Date: 20050511
  Receipt Date: 20050503
  Transmission Date: 20051028
  Serious: Yes (Other)
  Sender: FDA-Public Use
  Company Number: 2005AC00693

PATIENT
  Age: 36 Year
  Sex: Male

DRUGS (7)
  1. PROPOFOL [Suspect]
     Indication: SEDATION
     Dosage: 2% PROPOFOL WITH 0.1G/ML FAT (12.5G DAILY OF FAT)
     Route: 042
  2. PROPOFOL [Suspect]
     Dosage: 2% PROPOFOL WITH 30G OF FAT DAILY
     Route: 042
  3. PROPOFOL [Suspect]
     Dosage: 2% PROPOFOL WITH 52.5G OF FAT DAILY
     Route: 042
  4. DOPAMINE HCL [Concomitant]
     Dosage: LOW DOSE
  5. FUROSEMIDE [Concomitant]
     Dosage: LOW DOSE
  6. AMPICILLIN [Concomitant]
  7. CLINDAMYCIN [Concomitant]

REACTIONS (4)
  - BLOOD CREATINE PHOSPHOKINASE INCREASED [None]
  - BLOOD URINE PRESENT [None]
  - CHROMATURIA [None]
  - MYOGLOBINAEMIA [None]
